FAERS Safety Report 9324820 (Version 2)
Quarter: 2014Q1

REPORT INFORMATION
  Report Type: Report from Study
  Country: ES (occurrence: ES)
  Receive Date: 20130603
  Receipt Date: 20140227
  Transmission Date: 20141002
  Serious: Yes (Death, Other)
  Sender: FDA-Public Use
  Company Number: ES-US-EMD SERONO, INC.-7215177

PATIENT
  Age: 37 Year
  Sex: Female

DRUGS (1)
  1. REBIF [Suspect]
     Indication: MULTIPLE SCLEROSIS
     Route: 058
     Dates: start: 200111, end: 201210

REACTIONS (4)
  - Respiratory failure [Fatal]
  - Pneumonia aspiration [Unknown]
  - Multiple sclerosis [Unknown]
  - Dysphagia [Unknown]
